FAERS Safety Report 19105938 (Version 1)
Quarter: 2021Q2

REPORT INFORMATION
  Report Type: Spontaneous
  Country: PL (occurrence: PL)
  Receive Date: 20210408
  Receipt Date: 20210408
  Transmission Date: 20210717
  Serious: Yes (Other)
  Sender: FDA-Public Use
  Company Number: PL-SA-2021SA114198

PATIENT
  Age: 68 Year
  Weight: 80 kg

DRUGS (3)
  1. OXALIPLATIN. [Suspect]
     Active Substance: OXALIPLATIN
     Indication: COLON CANCER
     Dosage: 150 UNK (DOSE: 150; UNSPECIFIED UNITS)
     Route: 042
     Dates: start: 20170905, end: 20180320
  2. CALCIUM FOLINATE [Suspect]
     Active Substance: LEUCOVORIN CALCIUM
     Indication: COLON CANCER
     Dosage: 354 UNK (DOSE: 354; UNSPECIFIED UNITS)
     Route: 042
     Dates: start: 20170905, end: 20180320
  3. FLUOROURACIL. [Suspect]
     Active Substance: FLUOROURACIL
     Indication: COLON CANCER
     Dosage: UNK (DOSE: 708 ? BOLUS; 1062 ? DRIP; UNSPECIFIED UNITS)
     Route: 042
     Dates: start: 20170905, end: 20180320

REACTIONS (1)
  - Neutropenia [Unknown]

NARRATIVE: CASE EVENT DATE: 20180403
